FAERS Safety Report 9659459 (Version 4)
Quarter: 2013Q4

REPORT INFORMATION
  Report Type: Spontaneous
  Country: JP (occurrence: JP)
  Receive Date: 20131031
  Receipt Date: 20131205
  Transmission Date: 20140711
  Serious: Yes (Hospitalization)
  Sender: FDA-Public Use
  Company Number: JP-JNJFOC-20131014498

PATIENT
  Age: 60 Year
  Sex: Female

DRUGS (1)
  1. TRAMCET [Suspect]
     Indication: PRODUCT USED FOR UNKNOWN INDICATION
     Dosage: ONCE PER DAY
     Route: 048

REACTIONS (3)
  - Hospitalisation [Recovered/Resolved]
  - Vomiting [Recovering/Resolving]
  - Blood sodium decreased [Unknown]
